FAERS Safety Report 9223716 (Version 1)
Quarter: 2013Q2

REPORT INFORMATION
  Report Type: Spontaneous
  Country: US (occurrence: US)
  Receive Date: 20130410
  Receipt Date: 20130410
  Transmission Date: 20140414
  Serious: Yes (Other)
  Sender: FDA-Public Use
  Company Number: CHPA2013US005936

PATIENT
  Age: 68 Year
  Sex: 0

DRUGS (2)
  1. MAALOX ANTACID/ANTIGAS RS LIQ COOL MINT [Suspect]
     Indication: DYSPEPSIA
     Dosage: 1 TBSP, PRN
     Route: 048
     Dates: start: 1964
  2. MAALOX ANTACID/ANTIGAS MS LIQ COOL MINT [Suspect]
     Indication: DYSPEPSIA
     Dosage: 1 TBSP, PRN
     Route: 048
     Dates: start: 1964

REACTIONS (7)
  - Diabetes mellitus [Not Recovered/Not Resolved]
  - Sleep apnoea syndrome [Not Recovered/Not Resolved]
  - Oesophagitis [Recovered/Resolved]
  - Gastrooesophageal reflux disease [Unknown]
  - Dyspepsia [Unknown]
  - Expired drug administered [Unknown]
  - Incorrect dose administered [Unknown]
